FAERS Safety Report 11613291 (Version 2)
Quarter: 2015Q4

REPORT INFORMATION
  Report Type: Spontaneous
  Country: US (occurrence: US)
  Receive Date: 20151008
  Receipt Date: 20151215
  Transmission Date: 20160304
  Serious: Yes (Hospitalization, Other)
  Sender: FDA-Public Use
  Company Number: US-JNJFOC-20150908452

PATIENT
  Age: 42 Year
  Sex: Female

DRUGS (16)
  1. HUMALOG [Concomitant]
     Active Substance: INSULIN LISPRO
     Route: 065
  2. METHOCARBAMOL. [Concomitant]
     Active Substance: METHOCARBAMOL
     Route: 065
  3. PANTOPRAZOLE [Concomitant]
     Active Substance: PANTOPRAZOLE SODIUM
     Route: 065
  4. POTASSIUM CHLORIDE. [Concomitant]
     Active Substance: POTASSIUM CHLORIDE
     Route: 065
  5. ESCITALOPRAM [Concomitant]
     Active Substance: ESCITALOPRAM OXALATE
     Route: 065
  6. METFORMIN [Concomitant]
     Active Substance: METFORMIN HYDROCHLORIDE
     Route: 065
  7. METOPROLOL [Concomitant]
     Active Substance: METOPROLOL
     Route: 065
  8. XARELTO [Suspect]
     Active Substance: RIVAROXABAN
     Indication: PULMONARY EMBOLISM
     Route: 048
     Dates: start: 20130911, end: 20150121
  9. LOVENOX [Suspect]
     Active Substance: ENOXAPARIN SODIUM
     Indication: PULMONARY EMBOLISM
     Route: 065
     Dates: start: 201408, end: 201408
  10. NITROGLYCERIN. [Concomitant]
     Active Substance: NITROGLYCERIN
     Route: 065
  11. DOCUSATE [Concomitant]
     Active Substance: DOCUSATE
     Route: 065
  12. PROMETHAZINE [Concomitant]
     Active Substance: PROMETHAZINE\PROMETHAZINE HYDROCHLORIDE
     Route: 065
  13. ASPIRIN. [Suspect]
     Active Substance: ASPIRIN
     Indication: CARDIAC DISORDER
     Route: 048
  14. DILTIAZEM [Concomitant]
     Active Substance: DILTIAZEM
     Route: 065
  15. HYDROCODONE BITARTRATE AND ACETAMINOPHEN [Concomitant]
     Active Substance: ACETAMINOPHEN\HYDROCODONE BITARTRATE
     Route: 065
  16. ATIVAN [Concomitant]
     Active Substance: LORAZEPAM
     Route: 065

REACTIONS (3)
  - Anxiety [Unknown]
  - Gastrointestinal haemorrhage [Recovered/Resolved]
  - Haematuria [Recovered/Resolved]

NARRATIVE: CASE EVENT DATE: 20141116
